FAERS Safety Report 17094779 (Version 1)
Quarter: 2019Q4

REPORT INFORMATION
  Report Type: Spontaneous
  Country: US (occurrence: US)
  Receive Date: 20191130
  Receipt Date: 20191130
  Transmission Date: 20200122
  Serious: No
  Sender: FDA-Public Use
  Company Number: US-TEVA-2019-US-1144337

PATIENT
  Age: 67 Year
  Sex: Female

DRUGS (2)
  1. DIAZEPAM TEVA [Suspect]
     Active Substance: DIAZEPAM
     Indication: ANXIETY
     Route: 065
  2. DIAZEPAM TEVA [Suspect]
     Active Substance: DIAZEPAM
     Indication: HEART RATE IRREGULAR

REACTIONS (3)
  - Chest pain [Unknown]
  - Agitation [Unknown]
  - Drug ineffective [Unknown]
